FAERS Safety Report 9293049 (Version 1)
Quarter: 2013Q2

REPORT INFORMATION
  Report Type: Spontaneous
  Country: US (occurrence: None)
  Receive Date: 20130515
  Receipt Date: 20130515
  Transmission Date: 20140414
  Serious: Yes (Hospitalization)
  Sender: FDA-Public Use
  Company Number: None

PATIENT
  Age: 34 Year
  Sex: Female
  Weight: 77.11 kg

DRUGS (2)
  1. TECFIDERA [Suspect]
     Indication: MULTIPLE SCLEROSIS
     Route: 048
     Dates: start: 20130511, end: 20130511
  2. TECFIDERA [Concomitant]

REACTIONS (6)
  - Rash generalised [None]
  - Urticaria [None]
  - Palpitations [None]
  - Joint swelling [None]
  - Throat tightness [None]
  - Arthralgia [None]
